FAERS Safety Report 19980414 (Version 1)
Quarter: 2021Q4

REPORT INFORMATION
  Report Type: Spontaneous
  Country: GB (occurrence: GB)
  Receive Date: 20211021
  Receipt Date: 20211021
  Transmission Date: 20220303
  Serious: Yes (Other)
  Sender: FDA-Public Use
  Company Number: None

PATIENT
  Age: 71 Year
  Sex: Male
  Weight: 105 kg

DRUGS (9)
  1. PIOGLITAZONE [Suspect]
     Active Substance: PIOGLITAZONE
     Indication: Diabetes mellitus
     Dosage: 45 MG-INCREASED INCREMENTALLY FROM 15 MG
     Route: 048
     Dates: start: 20080207, end: 20211004
  2. ASPIRIN [Concomitant]
     Active Substance: ASPIRIN
     Indication: Ill-defined disorder
     Dosage: UNKNOWN
  3. ESOMEPRAZOLE SODIUM [Concomitant]
     Active Substance: ESOMEPRAZOLE SODIUM
     Indication: Ill-defined disorder
     Dosage: UNKNOWN
  4. INSULIN HUMAN [Concomitant]
     Active Substance: INSULIN HUMAN
     Indication: Ill-defined disorder
     Dosage: UNKNOWN
  5. IRBESARTAN [Concomitant]
     Active Substance: IRBESARTAN
     Indication: Ill-defined disorder
     Dosage: UNKNOWN
  6. METFORMIN [Concomitant]
     Active Substance: METFORMIN HYDROCHLORIDE
     Indication: Ill-defined disorder
     Dosage: UNKNOWN
  7. SIMVASTATIN [Concomitant]
     Active Substance: SIMVASTATIN
     Indication: Ill-defined disorder
     Dosage: UNKNOWN
  8. TADALAFIL [Concomitant]
     Active Substance: TADALAFIL
     Indication: Ill-defined disorder
     Dosage: UNKNOWN
  9. VICTOZA [Concomitant]
     Active Substance: LIRAGLUTIDE
     Indication: Ill-defined disorder
     Dosage: UNKNOWN

REACTIONS (1)
  - Bladder transitional cell carcinoma [Recovered/Resolved]

NARRATIVE: CASE EVENT DATE: 20210614
